FAERS Safety Report 12085675 (Version 1)
Quarter: 2016Q1

REPORT INFORMATION
  Report Type: Spontaneous
  Country: US (occurrence: US)
  Receive Date: 20160217
  Receipt Date: 20160217
  Transmission Date: 20160526
  Serious: Yes (Death)
  Sender: FDA-Public Use
  Company Number: US-ACTELION-A-US2016-131383

PATIENT
  Age: 16 Year
  Sex: Female

DRUGS (13)
  1. ENSURE [Concomitant]
     Active Substance: AMINO ACIDS\DEXTROSE\ELECTROLYTES NOS\SOYBEAN OIL\VITAMINS
     Dosage: UNK
     Dates: start: 20110926
  2. TOPAMAX [Concomitant]
     Active Substance: TOPIRAMATE
     Dosage: 1 UNK, BID
     Route: 048
     Dates: start: 20150407
  3. TYLENOL [Concomitant]
     Active Substance: ACETAMINOPHEN
     Dosage: 2 TSP, QD
     Dates: start: 20150407
  4. PATADAY [Concomitant]
     Active Substance: OLOPATADINE HYDROCHLORIDE
  5. LAMICTAL [Concomitant]
     Active Substance: LAMOTRIGINE
     Dosage: 175 MG, BID
     Dates: start: 20150407
  6. DALLERGY [Concomitant]
     Active Substance: CHLORCYCLIZINE HYDROCHLORIDE\PHENYLEPHRINE\PHENYLEPHRINE HYDROCHLORIDE
     Dosage: 1 TSP, QID
     Dates: start: 20150407
  7. DYMISTA [Concomitant]
     Active Substance: AZELASTINE HYDROCHLORIDE\FLUTICASONE PROPIONATE
  8. ADVIL [Concomitant]
     Active Substance: IBUPROFEN
     Dosage: 2 TSP, QD
     Dates: start: 20150407
  9. FLONASE [Concomitant]
     Active Substance: FLUTICASONE PROPIONATE
  10. IMODIUM [Concomitant]
     Active Substance: LOPERAMIDE HYDROCHLORIDE
     Dosage: UNK
     Route: 048
     Dates: start: 20150407
  11. VITAMIN D [Concomitant]
     Active Substance: CHOLECALCIFEROL
     Dosage: UNK
     Dates: start: 20110926
  12. MIRALAX [Concomitant]
     Active Substance: POLYETHYLENE GLYCOL 3350
     Dosage: UNK
     Dates: start: 20110926
  13. ZAVESCA [Suspect]
     Active Substance: MIGLUSTAT
     Indication: NIEMANN-PICK DISEASE
     Dosage: 100 MG, QD
     Route: 048
     Dates: start: 20111109

REACTIONS (1)
  - Death [Fatal]

NARRATIVE: CASE EVENT DATE: 201601
